FAERS Safety Report 8395875-8 (Version None)
Quarter: 2012Q1

REPORT INFORMATION
  Report Type: 
  Country: None (occurrence: None)
  Receive Date: 20120323
  Receipt Date: 20110330
  Transmission Date: 20120608
  Serious: Yes (Other)
  Sender: FDA-Public Use
  Company Number: 163-21880-11033603

PATIENT
  Age: 67 Year
  Sex: Male

DRUGS (6)
  1. PERCOSET (OXYCOCET) [Concomitant]
  2. REVLIMID [Suspect]
     Indication: MULTIPLE MYELOMA
     Dosage: 25 MG, QD 21D/28D, PO
     Route: 048
     Dates: start: 20101101
  3. DECADRON [Concomitant]
  4. PEPCID [Suspect]
     Indication: PRODUCT USED FOR UNKNOWN INDICATION
     Dosage: 2, QD, PO
     Route: 048
     Dates: start: 20101201
  5. ASPIRIN [Concomitant]
  6. AMBIEN [Concomitant]

REACTIONS (1)
  - RASH GENERALISED [None]
